FAERS Safety Report 7552527-1 (Version None)
Quarter: 2011Q2

REPORT INFORMATION
  Report Type: 
  Country: None (occurrence: None)
  Receive Date: 20110616
  Receipt Date: 20110604
  Transmission Date: 20111010
  Serious: Yes (Other)
  Sender: FDA-Public Use
  Company Number: US-ELI_LILLY_AND_COMPANY-US201001006150

PATIENT
  Sex: Male

DRUGS (3)
  1. PREDNISONE [Concomitant]
  2. FORTEO [Suspect]
     Indication: OSTEOPOROSIS
     Dosage: 20 UG, DAILY (1/D)
     Dates: start: 20100101
  3. FOSAMAX [Concomitant]

REACTIONS (13)
  - SENSATION OF PRESSURE [None]
  - THORACIC VERTEBRAL FRACTURE [None]
  - BACK PAIN [None]
  - ABDOMINAL DISTENSION [None]
  - CHOLECYSTECTOMY [None]
  - PERIPHERAL NERVE OPERATION [None]
  - GASTROINTESTINAL BACTERIAL INFECTION [None]
  - SURGERY [None]
  - MUSCULOSKELETAL CHEST PAIN [None]
  - COUGH [None]
  - MUSCLE SPASMS [None]
  - GAIT DISTURBANCE [None]
  - NASOPHARYNGITIS [None]
